FAERS Safety Report 4412871-3 (Version None)
Quarter: 2004Q3

REPORT INFORMATION
  Report Type: 
  Country: None (occurrence: None)
  Receive Date: 20040802
  Receipt Date: 20040630
  Transmission Date: 20050211
  Serious: Yes (Hospitalization, Other)
  Sender: FDA-Public Use
  Company Number: PHBS2004JP08875

PATIENT
  Age: 19 Year
  Sex: Male

DRUGS (10)
  1. NEORAL [Suspect]
     Indication: STEM CELL TRANSPLANT
     Dosage: 200 MG/D
     Route: 048
     Dates: start: 19510101, end: 20030601
  2. METHOTREXATE [Suspect]
     Indication: STEM CELL TRANSPLANT
     Dosage: 15 MG/D
     Route: 065
  3. METHOTREXATE [Suspect]
     Dosage: 10 MG/D
     Route: 065
  4. METHOTREXATE [Suspect]
     Dosage: 10 MG/D
     Route: 065
  5. L-PAM [Suspect]
     Indication: BONE MARROW CONDITIONING REGIMEN
     Dosage: 60 MG/M2
     Route: 042
  6. RADIOTHERAPY [Suspect]
  7. NEUPOGEN [Concomitant]
  8. STOGAR [Concomitant]
     Dosage: 20 MG/D
     Route: 048
     Dates: start: 20010501
  9. BAKTAR [Concomitant]
     Route: 048
     Dates: start: 20010501
  10. GASMOTIN [Concomitant]
     Dosage: 15 MG/D
     Route: 048
     Dates: start: 20010501

REACTIONS (9)
  - DIARRHOEA [None]
  - GASTROINTESTINAL MUCOSAL DISORDER [None]
  - GRAFT VERSUS HOST DISEASE [None]
  - NAUSEA [None]
  - NEUTROPENIA [None]
  - OBLITERATIVE BRONCHIOLITIS [None]
  - SEPSIS [None]
  - STOMATITIS [None]
  - VOMITING [None]
